FAERS Safety Report 8774274 (Version 1)
Quarter: 2012Q4

REPORT INFORMATION
  Report Type: 
  Country: US (occurrence: US)
  Receive Date: 20120907
  Receipt Date: 20120907
  Transmission Date: 20130627
  Serious: Yes (Other)
  Sender: FDA-Public Use
  Company Number: US-CELGENEUS-163-21880-12090179

PATIENT
  Sex: Female

DRUGS (1)
  1. REVLIMID [Suspect]
     Indication: MDS
     Dosage: 10 Milligram
     Route: 048
     Dates: start: 20120712

REACTIONS (4)
  - Carotid arteriosclerosis [Unknown]
  - Haemoglobin decreased [Unknown]
  - Intervertebral disc protrusion [Unknown]
  - Oedema peripheral [Recovered/Resolved]
